FAERS Safety Report 4284043-7 (Version None)
Quarter: 2004Q1

REPORT INFORMATION
  Report Type: 
  Country: None (occurrence: None)
  Receive Date: 20040202
  Receipt Date: 20040202
  Transmission Date: 20041129
  Serious: Yes (Other)
  Sender: FDA-Public Use
  Company Number: None

PATIENT
  Sex: Female
  Weight: 48.9885 kg

DRUGS (14)
  1. VISUDYNE [Suspect]
     Indication: MACULAR DEGENERATION
     Dosage: 8 MG ONE DOSE INTRAVENOUS
     Route: 042
     Dates: start: 20031123, end: 20031123
  2. LOPERAMIDE HCL [Concomitant]
  3. PREVACID [Concomitant]
  4. MILK OF MAGNESIA TAB [Concomitant]
  5. SIMETHICONE [Concomitant]
  6. THERAGRAN [Concomitant]
  7. DIGOXIN [Concomitant]
  8. BUMETONIDE [Concomitant]
  9. ASPIRIN [Concomitant]
  10. ACTONEL [Concomitant]
  11. KLOR-CON [Concomitant]
  12. PREVACID [Concomitant]
  13. XALATAN [Concomitant]
  14. ARTIFICIAL TEARS [Concomitant]

REACTIONS (1)
  - RASH GENERALISED [None]
